FAERS Safety Report 20098657 (Version 1)
Quarter: 2021Q4

REPORT INFORMATION
  Report Type: Spontaneous
  Country: US (occurrence: US)
  Receive Date: 20211122
  Receipt Date: 20211122
  Transmission Date: 20220303
  Serious: No
  Sender: FDA-Public Use
  Company Number: US-BRACCO-2021US03617

PATIENT
  Age: 25 Year
  Sex: Male

DRUGS (5)
  1. LUMASON [Suspect]
     Active Substance: SULFUR HEXAFLUORIDE
     Indication: Echocardiogram
     Dosage: 2 ML, SINGLE CONSTITUTED PER PI DUE TO SUBOPTIMAL QUALITY IMAGE
     Route: 042
     Dates: start: 20210817, end: 20210817
  2. LUMASON [Suspect]
     Active Substance: SULFUR HEXAFLUORIDE
     Indication: Echocardiogram
     Dosage: 2 ML, SINGLE CONSTITUTED PER PI DUE TO SUBOPTIMAL QUALITY IMAGE
     Route: 042
     Dates: start: 20210817, end: 20210817
  3. LUMASON [Suspect]
     Active Substance: SULFUR HEXAFLUORIDE
     Indication: Echocardiogram
     Dosage: 2 ML, SINGLE CONSTITUTED PER PI DUE TO SUBOPTIMAL QUALITY IMAGE
     Route: 042
     Dates: start: 20210817, end: 20210817
  4. ALBUTEROL SULFATE [Concomitant]
     Active Substance: ALBUTEROL SULFATE
  5. ZANTAC [Concomitant]
     Active Substance: RANITIDINE HYDROCHLORIDE

REACTIONS (1)
  - Anxiety [Recovered/Resolved]

NARRATIVE: CASE EVENT DATE: 20210817
